FAERS Safety Report 15848632 (Version 1)
Quarter: 2019Q1

REPORT INFORMATION
  Report Type: Report from Study
  Country: GB (occurrence: GB)
  Receive Date: 20190121
  Receipt Date: 20190121
  Transmission Date: 20190417
  Serious: Yes (Other)
  Sender: FDA-Public Use
  Company Number: GB-ROCHE-2247071

PATIENT

DRUGS (6)
  1. MYCOPHENOLATE MOFETIL. [Suspect]
     Active Substance: MYCOPHENOLATE MOFETIL
     Indication: RENAL VASCULITIS
     Dosage: 1-2 G/DAY (TARGETED TO TROUGH LEVELS OF 1.2-2.4 MG/L)
     Route: 065
  2. AZATHIOPRINE. [Suspect]
     Active Substance: AZATHIOPRINE
     Indication: RENAL VASCULITIS
     Dosage: 1-2 MG/KG/DAY
     Route: 065
  3. RITUXIMAB. [Suspect]
     Active Substance: RITUXIMAB
     Indication: RENAL VASCULITIS
     Dosage: 2 DOSES ONE EACH AT DAY 0 AND WEEK 2
     Route: 042
  4. PREDNISOLONE. [Suspect]
     Active Substance: PREDNISOLONE
     Indication: RENAL VASCULITIS
     Dosage: (MAXIMUM 60 MG)
     Route: 048
  5. CYCLOPHOSPHAMIDE. [Suspect]
     Active Substance: CYCLOPHOSPHAMIDE
     Dosage: 4 DOSES, ONE EACH IN WEEK 4, 6, 8, AND 10
     Route: 042
  6. CYCLOPHOSPHAMIDE. [Suspect]
     Active Substance: CYCLOPHOSPHAMIDE
     Indication: RENAL VASCULITIS
     Route: 042

REACTIONS (14)
  - Osteoporosis [Unknown]
  - Infection [Unknown]
  - Squamous cell carcinoma [Unknown]
  - Fracture [Unknown]
  - Cytomegalovirus viraemia [Unknown]
  - Embolism venous [Unknown]
  - Diabetes mellitus [Unknown]
  - Hypogammaglobulinaemia [Unknown]
  - Breast cancer [Unknown]
  - Prostate cancer [Unknown]
  - Herpes zoster [Unknown]
  - Cardiac disorder [Unknown]
  - Aspergillus infection [Unknown]
  - Basal cell carcinoma [Unknown]
